FAERS Safety Report 16972816 (Version 1)
Quarter: 2019Q4

REPORT INFORMATION
  Report Type: Spontaneous
  Country: US (occurrence: US)
  Receive Date: 20191030
  Receipt Date: 20191030
  Transmission Date: 20200122
  Serious: No
  Sender: FDA-Public Use
  Company Number: US-ACCORD-150954

PATIENT
  Age: 67 Year
  Sex: Female

DRUGS (1)
  1. ESCITALOPRAM ACCORD [Suspect]
     Active Substance: ESCITALOPRAM OXALATE
     Indication: PRODUCT USED FOR UNKNOWN INDICATION
     Dosage: STRENGTH: 20 MG

REACTIONS (4)
  - Vomiting [Unknown]
  - Anxiety [Unknown]
  - Depression [Unknown]
  - Eating disorder [Unknown]
